FAERS Safety Report 8637122 (Version 2)
Quarter: 2014Q1

REPORT INFORMATION
  Report Type: Spontaneous
  Country: US (occurrence: US)
  Receive Date: 20120627
  Receipt Date: 20140113
  Transmission Date: 20141002
  Serious: Yes (Hospitalization, Disabling, Other)
  Sender: FDA-Public Use
  Company Number: US-ASTRAZENECA-2012SE35600

PATIENT
  Age: 16378 Day
  Sex: Female
  Weight: 61.2 kg

DRUGS (27)
  1. NEXIUM [Suspect]
     Indication: GASTROOESOPHAGEAL REFLUX DISEASE
     Route: 048
     Dates: start: 20020305
  2. NEXIUM [Suspect]
     Indication: ABDOMINAL PAIN UPPER
     Route: 048
     Dates: start: 20020305
  3. NEXIUM [Suspect]
     Indication: GASTROOESOPHAGEAL REFLUX DISEASE
     Route: 048
     Dates: start: 20020828
  4. NEXIUM [Suspect]
     Indication: ABDOMINAL PAIN UPPER
     Route: 048
     Dates: start: 20020828
  5. PRILOSEC [Suspect]
     Indication: DYSPEPSIA
     Route: 048
     Dates: start: 20000605
  6. PRILOSEC [Suspect]
     Indication: GASTROOESOPHAGEAL REFLUX DISEASE
     Route: 048
     Dates: start: 20000605
  7. PRILOSEC [Suspect]
     Indication: DYSPEPSIA
     Route: 048
     Dates: start: 20010126
  8. PRILOSEC [Suspect]
     Indication: GASTROOESOPHAGEAL REFLUX DISEASE
     Route: 048
     Dates: start: 20010126
  9. ZANTAC [Concomitant]
     Route: 048
     Dates: start: 19910718
  10. VIOXX [Concomitant]
     Indication: SHOULDER OPERATION
  11. VIOXX [Concomitant]
     Indication: ARTHRITIS
  12. VICODIN [Concomitant]
     Indication: SHOULDER OPERATION
  13. ZYRTEC [Concomitant]
     Indication: HYPERSENSITIVITY
  14. IMITIEX [Concomitant]
     Indication: HEADACHE
  15. PAXIL [Concomitant]
     Indication: HEADACHE
  16. DEPAKOTE [Concomitant]
     Indication: MIGRAINE
  17. AMITRIPTYLINE [Concomitant]
     Indication: DEPRESSION
  18. VENLAFAXINE [Concomitant]
     Indication: DEPRESSION
  19. TOPIRAMATE [Concomitant]
     Indication: HEADACHE
  20. METOCLOPRAMIDE [Concomitant]
     Indication: HEADACHE
  21. AUGMENTIN [Concomitant]
  22. HYDROXYZINE HCL [Concomitant]
  23. LORATADINE [Concomitant]
     Indication: MULTIPLE ALLERGIES
  24. MULTIVITAMINS [Concomitant]
     Indication: IMMUNE SYSTEM DISORDER
     Dosage: ONCE DAILY
  25. NAPROXEN [Concomitant]
     Indication: PAIN
  26. NAPROXEN [Concomitant]
     Indication: INFLAMMATION
  27. HYDROCODONE [Concomitant]
     Indication: TOOTHACHE

REACTIONS (29)
  - Activities of daily living impaired [Unknown]
  - Rotator cuff syndrome [Unknown]
  - Hand deformity [Unknown]
  - Back pain [Unknown]
  - Pain in extremity [Unknown]
  - Limb crushing injury [Unknown]
  - Migraine [Unknown]
  - Osteoporosis [Unknown]
  - Ligament injury [Unknown]
  - Multiple fractures [Unknown]
  - Foot fracture [Unknown]
  - Vitamin D deficiency [Unknown]
  - Rib fracture [Unknown]
  - Ankle fracture [Unknown]
  - Road traffic accident [Unknown]
  - Syncope [Unknown]
  - Trigger finger [Unknown]
  - Hyperthyroidism [Unknown]
  - Scoliosis [Unknown]
  - Fibula fracture [Unknown]
  - Contusion [Unknown]
  - Arthritis [Unknown]
  - Osteopenia [Unknown]
  - Intervertebral disc protrusion [Unknown]
  - Intervertebral disc degeneration [Unknown]
  - Osteoarthritis [Unknown]
  - Radiculopathy [Unknown]
  - Spinal osteoarthritis [Unknown]
  - Depression [Unknown]
